FAERS Safety Report 12892515 (Version 1)
Quarter: 2016Q4

REPORT INFORMATION
  Report Type: Spontaneous
  Country: US (occurrence: US)
  Receive Date: 20161028
  Receipt Date: 20161028
  Transmission Date: 20170207
  Serious: No
  Sender: FDA-Public Use
  Company Number: US-PFIZER INC-2016497905

PATIENT
  Sex: Female

DRUGS (1)
  1. SUTENT [Suspect]
     Active Substance: SUNITINIB MALATE
     Dosage: UNK
     Dates: end: 201603

REACTIONS (4)
  - Erythema [Recovered/Resolved]
  - Skin hypopigmentation [Unknown]
  - Skin discolouration [Unknown]
  - Skin hyperpigmentation [Recovered/Resolved]
